FAERS Safety Report 8398357-2 (Version None)
Quarter: 2012Q2

REPORT INFORMATION
  Report Type: 
  Country: None (occurrence: None)
  Receive Date: 20120531
  Receipt Date: 20120521
  Transmission Date: 20120825
  Serious: Yes (Hospitalization, Other)
  Sender: FDA-Public Use
  Company Number: GB-ELI_LILLY_AND_COMPANY-GB201204000057

PATIENT
  Age: 55 Year
  Sex: Female
  Weight: 146 kg

DRUGS (8)
  1. EFFEXOR [Concomitant]
     Dosage: 300 MG, UNK
     Route: 048
     Dates: start: 20120109
  2. EFFEXOR [Concomitant]
     Indication: DEPRESSION
     Dosage: 225 MG, UNK
  3. FLUOXETINE [Suspect]
     Indication: DEPRESSION
     Dosage: 20 MG, UNK
     Route: 048
     Dates: end: 20120301
  4. EFFEXOR [Concomitant]
     Dosage: 225 MG, UNK
     Route: 048
     Dates: start: 20120208
  5. BENDROFLUMETHIAZIDE [Concomitant]
     Indication: HYPERTENSION
     Dosage: 2.5 MG, UNK
     Route: 048
  6. IRBESARTAN [Concomitant]
     Indication: HYPERTENSION
     Dosage: 300 MG, UNK
     Route: 048
  7. METFORMIN HCL [Concomitant]
     Indication: OBESITY
     Dosage: 500 MG, BID
     Route: 048
  8. IBUPROFEN [Concomitant]
     Indication: HEADACHE
     Dosage: 400 MG, PRN

REACTIONS (2)
  - ENDOMETRIAL HYPERPLASIA [None]
  - MENORRHAGIA [None]
